FAERS Safety Report 11886063 (Version 1)
Quarter: 2016Q1

REPORT INFORMATION
  Report Type: Spontaneous
  Country: US (occurrence: US)
  Receive Date: 20160104
  Receipt Date: 20160104
  Transmission Date: 20160526
  Serious: No
  Sender: FDA-Public Use
  Company Number: US-PFIZER INC-2015434046

PATIENT
  Age: 78 Year
  Sex: Female

DRUGS (1)
  1. GABAPENTIN. [Suspect]
     Active Substance: GABAPENTIN
     Dosage: 100 MG, 2X/DAY
     Dates: start: 20151014

REACTIONS (3)
  - Dizziness [Unknown]
  - Diarrhoea [Unknown]
  - Drug effect incomplete [Unknown]
